FAERS Safety Report 12265114 (Version 1)
Quarter: 2016Q2

REPORT INFORMATION
  Report Type: Report from Study
  Country: US (occurrence: US)
  Receive Date: 20160413
  Receipt Date: 20160413
  Transmission Date: 20160815
  Serious: Yes (Death, Life-Threatening, Hospitalization, Other)
  Sender: FDA-Public Use
  Company Number: US-GLAXOSMITHKLINE-US2016GSK049237

PATIENT
  Age: 15 Year
  Sex: Female
  Weight: 68 kg

DRUGS (5)
  1. HYDROCORTISONE. [Concomitant]
     Active Substance: HYDROCORTISONE
     Indication: SEPTIC SHOCK
     Dosage: 7 MG, QID
     Route: 042
     Dates: start: 20160317
  2. ZANAMIVIR [Suspect]
     Active Substance: ZANAMIVIR
     Dosage: UNK
     Dates: start: 20160319, end: 20160322
  3. RANITIDINE HYDROCHLORIDE. [Concomitant]
     Active Substance: RANITIDINE HYDROCHLORIDE
     Dosage: 50 MG, BID
     Route: 042
     Dates: start: 20160317, end: 20160326
  4. ZANAMIVIR [Suspect]
     Active Substance: ZANAMIVIR
     Indication: INFLUENZA
     Dosage: 600 MG, UNK
     Route: 055
     Dates: start: 20160318
  5. TOTAL PARENTERAL NUTRITION [Concomitant]
     Active Substance: UNSPECIFIED INGREDIENT
     Indication: ILL-DEFINED DISORDER
     Dosage: 1200 ML, UNK
     Route: 042
     Dates: start: 20160318

REACTIONS (2)
  - Cholestasis [Not Recovered/Not Resolved]
  - Serratia sepsis [Fatal]

NARRATIVE: CASE EVENT DATE: 20160329
